FAERS Safety Report 4637380-8 (Version None)
Quarter: 2005Q2

REPORT INFORMATION
  Report Type: 
  Country: None (occurrence: None)
  Receive Date: 20050328
  Receipt Date: 20041223
  Transmission Date: 20051028
  Serious: No
  Sender: FDA-Public Use
  Company Number: USA040978718

PATIENT
  Age: 56 Year
  Sex: Male
  Weight: 91 kg

DRUGS (2)
  1. STRATTERA [Suspect]
     Indication: ATTENTION DEFICIT/HYPERACTIVITY DISORDER
     Dosage: 40 MG/2 DAY
     Dates: start: 20040301, end: 20041201
  2. OMEPRAZOLE [Concomitant]

REACTIONS (1)
  - SEMEN VOLUME DECREASED [None]
